FAERS Safety Report 9486211 (Version 1)
Quarter: 2013Q3

REPORT INFORMATION
  Report Type: Spontaneous
  Country: US (occurrence: None)
  Receive Date: 20130827
  Receipt Date: 20130827
  Transmission Date: 20140515
  Serious: Yes (Other)
  Sender: FDA-Public Use
  Company Number: None

PATIENT
  Age: 63 Year
  Sex: Female
  Weight: 75.3 kg

DRUGS (15)
  1. RECLAST [Suspect]
  2. VIT D [Concomitant]
  3. PROVASTIN [Concomitant]
  4. SYNTHROID [Concomitant]
  5. MULTIVITS [Concomitant]
  6. VIT C [Concomitant]
  7. VIT B COMPLEX [Concomitant]
  8. CALCIUM 600 WITH MAGNESUM [Concomitant]
  9. CQ10 [Concomitant]
  10. TYLENOL [Concomitant]
  11. IBUPROFEN [Concomitant]
  12. FLONOSE [Concomitant]
  13. ATROVENT [Concomitant]
  14. OMEGA-3 [Concomitant]
  15. OMEPRAZOLE [Concomitant]

REACTIONS (6)
  - Influenza like illness [None]
  - Limb discomfort [None]
  - Joint swelling [None]
  - Weight bearing difficulty [None]
  - Musculoskeletal stiffness [None]
  - Joint effusion [None]
